FAERS Safety Report 8699381 (Version 2)
Quarter: 2013Q3

REPORT INFORMATION
  Report Type: Spontaneous
  Country: US (occurrence: US)
  Receive Date: 20120802
  Receipt Date: 20130819
  Transmission Date: 20140515
  Serious: Yes (Other)
  Sender: FDA-Public Use
  Company Number: US-BRISTOL-MYERS SQUIBB COMPANY-16696668

PATIENT
  Age: 43 Year
  Sex: Male

DRUGS (4)
  1. REYATAZ [Suspect]
     Indication: HIV INFECTION
     Route: 048
     Dates: start: 20120306, end: 20120611
  2. TRUVADA [Suspect]
  3. NORVIR [Suspect]
  4. METFORMIN [Concomitant]

REACTIONS (1)
  - Jaundice [Recovered/Resolved]
